FAERS Safety Report 7747561-2 (Version None)
Quarter: 2011Q3

REPORT INFORMATION
  Report Type: 
  Country: None (occurrence: None)
  Receive Date: 20110913
  Receipt Date: 20110830
  Transmission Date: 20111222
  Serious: Yes (Hospitalization)
  Sender: FDA-Public Use
  Company Number: FR-MYLANLABS-2011S1017939

PATIENT
  Age: 76 Year
  Sex: Male

DRUGS (12)
  1. VANCOMYCIN [Suspect]
     Indication: BLOOD CULTURE
     Route: 042
     Dates: start: 20110325, end: 20110325
  2. GANCICLOVIR SODIUM [Suspect]
     Indication: CYTOMEGALOVIRUS COLITIS
     Route: 042
     Dates: start: 20110321, end: 20110401
  3. METRONIDAZOLE [Suspect]
     Indication: BACTERIAL INFECTION
     Route: 042
     Dates: start: 20110326, end: 20110330
  4. DIGOXIN [Concomitant]
     Indication: ATRIAL FIBRILLATION
  5. GENTAMICIN [Suspect]
     Indication: BLOOD CULTURE
     Route: 042
     Dates: start: 20110325, end: 20110327
  6. PREVISCAN [Concomitant]
     Indication: ATRIAL FIBRILLATION
  7. BACTRIM [Suspect]
     Indication: PNEUMOCYSTIS JIROVECI PNEUMONIA
     Route: 042
     Dates: start: 20110328, end: 20110409
  8. CEFTRIAXONE [Suspect]
     Indication: BLOOD CULTURE
     Route: 042
     Dates: start: 20110325, end: 20110329
  9. FLUCONAZOLE [Suspect]
     Indication: FUNGAL INFECTION
     Route: 048
     Dates: start: 20110323, end: 20110328
  10. BISOPROLOL FUMARATE [Concomitant]
     Indication: ATRIAL FIBRILLATION
  11. ROVAMYCINE [Suspect]
     Indication: PROPHYLAXIS
     Route: 042
     Dates: start: 20110328, end: 20110329
  12. PIPERACILLIN AND TAZOBACTAM [Suspect]
     Indication: PNEUMOCYSTIS JIROVECI PNEUMONIA
     Route: 042
     Dates: start: 20110330, end: 20110407

REACTIONS (1)
  - BONE MARROW TOXICITY [None]
